FAERS Safety Report 5033250-4 (Version None)
Quarter: 2006Q2

REPORT INFORMATION
  Report Type: 
  Country: None (occurrence: None)
  Receive Date: 20060620
  Receipt Date: 20060608
  Transmission Date: 20061013
  Serious: Yes (Hospitalization)
  Sender: FDA-Public Use
  Company Number: HQWYE058709JUN06

PATIENT
  Age: 43 Year
  Sex: Female

DRUGS (3)
  1. RAPAMUNE [Suspect]
     Indication: PROPHYLAXIS AGAINST TRANSPLANT REJECTION
     Dosage: 2 MG 1X PER 1 DAY ORAL
     Route: 048
     Dates: start: 20031125
  2. RANITIDINE [Concomitant]
  3. BACTRIM [Concomitant]

REACTIONS (6)
  - BLOOD CREATININE INCREASED [None]
  - COAGULOPATHY [None]
  - DEEP VEIN THROMBOSIS [None]
  - HAEMATOCRIT DECREASED [None]
  - PLEURAL EFFUSION [None]
  - PYREXIA [None]
